FAERS Safety Report 13386292 (Version 1)
Quarter: 2017Q1

REPORT INFORMATION
  Report Type: Report from Study
  Country: FR (occurrence: FR)
  Receive Date: 20170330
  Receipt Date: 20170330
  Transmission Date: 20170429
  Serious: Yes (Life-Threatening, Hospitalization, Disabling)
  Sender: FDA-Public Use
  Company Number: FR-ROCHE-1912439

PATIENT
  Sex: Male
  Weight: 68 kg

DRUGS (7)
  1. BISOPROLOL [Concomitant]
     Active Substance: BISOPROLOL
     Indication: HYPERTENSION
     Dosage: ONGOING TREATMENT
     Route: 048
     Dates: start: 20170321
  2. CARBOPLATIN. [Suspect]
     Active Substance: CARBOPLATIN
     Indication: GERM CELL NEOPLASM
     Route: 042
     Dates: start: 20170308, end: 20170312
  3. LOXEN LP [Concomitant]
     Active Substance: NICARDIPINE
     Route: 048
  4. BEVACIZUMAB [Suspect]
     Active Substance: BEVACIZUMAB
     Indication: GERM CELL NEOPLASM
     Route: 042
     Dates: start: 20170307, end: 20170323
  5. ETOPOSIDE. [Suspect]
     Active Substance: ETOPOSIDE
     Indication: GERM CELL NEOPLASM
     Route: 042
     Dates: start: 20170308, end: 20170312
  6. RAMIPRIL. [Concomitant]
     Active Substance: RAMIPRIL
     Indication: HYPERTENSION
     Route: 048
  7. IFOSFAMIDE. [Suspect]
     Active Substance: IFOSFAMIDE
     Indication: GERM CELL NEOPLASM
     Route: 042
     Dates: start: 20170308, end: 20170312

REACTIONS (2)
  - Blindness cortical [Not Recovered/Not Resolved]
  - Cerebral haemorrhage [Not Recovered/Not Resolved]

NARRATIVE: CASE EVENT DATE: 20170322
